FAERS Safety Report 9201855 (Version 2)
Quarter: 2013Q2

REPORT INFORMATION
  Report Type: Spontaneous
  Country: US (occurrence: None)
  Receive Date: 20130328
  Receipt Date: 20130516
  Transmission Date: 20140414
  Serious: Yes (Other)
  Sender: FDA-Public Use
  Company Number: SYM-2013-01720

PATIENT
  Age: 52 Year
  Sex: Female

DRUGS (4)
  1. DIASTAT [Suspect]
     Indication: CONVULSION
     Route: 054
     Dates: start: 201202
  2. ONFI (CLOBAZAM) (CLOBAZAM) [Concomitant]
  3. MAXALT (RIZATRIPTAN) (RIZATRIPTAN) [Concomitant]
  4. FENTANYL (FENTANYL) (PATCHES) (FENTANYL) [Concomitant]

REACTIONS (7)
  - Drug effect decreased [None]
  - Defaecation urgency [None]
  - Grand mal convulsion [None]
  - Palpitations [None]
  - Blood pressure increased [None]
  - Drug ineffective [None]
  - Product substitution issue [None]
